FAERS Safety Report 9305253 (Version 1)
Quarter: 2013Q2

REPORT INFORMATION
  Report Type: Spontaneous
  Country: US (occurrence: None)
  Receive Date: 20130521
  Receipt Date: 20130521
  Transmission Date: 20140414
  Serious: Yes (Death, Hospitalization)
  Sender: FDA-Public Use
  Company Number: USA/USA/13/0029529

PATIENT
  Age: 48 Year
  Sex: Male

DRUGS (4)
  1. TACROLIMUS (TACROLIMUS) [Suspect]
     Indication: IMMUNOSUPPRESSION
  2. MYCOPHENOLATE MOFETIL (MYCOPHENOLATE MOFETIL) [Suspect]
     Indication: IMMUNOSUPPRESSION
  3. PREDNISONE (PREDNISONE) [Suspect]
     Indication: IMMUNOSUPPRESSION
  4. RITUXIMAB (RITUXIMAB) [Suspect]
     Indication: IMMUNOSUPPRESSION
     Dosage: 780 MG, 4 CYCLICAL,

REACTIONS (4)
  - Progressive multifocal leukoencephalopathy [None]
  - Coronary artery disease [None]
  - Weight increased [None]
  - Cardiac failure acute [None]
